FAERS Safety Report 13484150 (Version 2)
Quarter: 2017Q2

REPORT INFORMATION
  Report Type: Spontaneous
  Country: US (occurrence: US)
  Receive Date: 20170425
  Receipt Date: 20170427
  Transmission Date: 20170830
  Serious: Yes (Other)
  Sender: FDA-Public Use
  Company Number: US-009507513-1704USA011262

PATIENT
  Age: 71 Year
  Sex: Male
  Weight: 60.5 kg

DRUGS (1)
  1. KEYTRUDA [Suspect]
     Active Substance: PEMBROLIZUMAB
     Indication: HEAD AND NECK CANCER
     Dosage: 200 MG, Q3W
     Route: 042
     Dates: start: 20170208, end: 20170301

REACTIONS (1)
  - Autoimmune hepatitis [Recovering/Resolving]

NARRATIVE: CASE EVENT DATE: 20170301
